FAERS Safety Report 9315953 (Version 3)
Quarter: 2013Q3

REPORT INFORMATION
  Report Type: Spontaneous
  Country: US (occurrence: US)
  Receive Date: 20130530
  Receipt Date: 20130718
  Transmission Date: 20140515
  Serious: Yes (Hospitalization)
  Sender: FDA-Public Use
  Company Number: US-BIOGENIDEC-2013BI045512

PATIENT
  Age: 55 Year
  Sex: Female

DRUGS (1)
  1. TYSABRI [Suspect]
     Indication: MULTIPLE SCLEROSIS
     Route: 042
     Dates: start: 20090417

REACTIONS (8)
  - Musculoskeletal disorder [Not Recovered/Not Resolved]
  - Wound [Not Recovered/Not Resolved]
  - Fall [Recovered/Resolved]
  - Bladder disorder [Unknown]
  - Dysstasia [Not Recovered/Not Resolved]
  - Skin lesion [Not Recovered/Not Resolved]
  - Abasia [Unknown]
  - Pyrexia [Recovered/Resolved]
